FAERS Safety Report 5593266-6 (Version None)
Quarter: 2008Q1

REPORT INFORMATION
  Report Type: 
  Country: None (occurrence: None)
  Receive Date: 20080114
  Receipt Date: 20080104
  Transmission Date: 20080703
  Serious: Yes (Other)
  Sender: FDA-Public Use
  Company Number: 230144J07USA

PATIENT
  Age: 42 Year
  Sex: Female
  Weight: 95.2554 kg

DRUGS (4)
  1. REBIF [Suspect]
     Indication: MULTIPLE SCLEROSIS
     Dosage: 44 MCG, 3 IN 1 WEEKS, SUBCUTANEOUS
     Route: 058
     Dates: start: 20050804
  2. PREDNISONE [Suspect]
     Dosage: 1 IN 4 HR, INTROCULAR; 2 IN 1 DAYS, INTROCULAR
     Route: 031
     Dates: start: 20070601, end: 20070601
  3. PREDNISONE [Suspect]
     Dosage: 1 IN 4 HR, INTROCULAR; 2 IN 1 DAYS, INTROCULAR
     Route: 031
     Dates: start: 20070601, end: 20070701
  4. WELLBUTRIN [Concomitant]

REACTIONS (5)
  - CATARACT [None]
  - DACRYOSTENOSIS ACQUIRED [None]
  - IRITIS [None]
  - RASH MACULO-PAPULAR [None]
  - VITREOUS FLOATERS [None]
